FAERS Safety Report 5925143-2 (Version None)
Quarter: 2008Q4

REPORT INFORMATION
  Report Type: 
  Country: None (occurrence: None)
  Receive Date: 20081021
  Receipt Date: 20081012
  Transmission Date: 20090506
  Serious: Yes (Other)
  Sender: FDA-Public Use
  Company Number: US-ROCHE-591319

PATIENT
  Sex: Female

DRUGS (2)
  1. PEG-INTERFERON A-2A (RO 25-8310) [Suspect]
     Dosage: FORM: PRE FILLED SYRINGE
     Route: 065
     Dates: start: 20081007
  2. RIBASPHERE [Suspect]
     Route: 065
     Dates: start: 20081007

REACTIONS (1)
  - HAEMOPTYSIS [None]
